FAERS Safety Report 5731139-6 (Version None)
Quarter: 2008Q2

REPORT INFORMATION
  Report Type: 
  Country: None (occurrence: None)
  Receive Date: 20080505
  Receipt Date: 20080430
  Transmission Date: 20081010
  Serious: Yes (Death, Hospitalization)
  Sender: FDA-Public Use
  Company Number: 2008-01505

PATIENT
  Sex: Male

DRUGS (1)
  1. VELCADE [Suspect]
     Indication: MULTIPLE MYELOMA
     Dates: start: 20080306

REACTIONS (3)
  - BLOOD VISCOSITY INCREASED [None]
  - CONFUSIONAL STATE [None]
  - HYPERCALCAEMIA [None]
